FAERS Safety Report 5885800-3 (Version None)
Quarter: 2008Q3

REPORT INFORMATION
  Report Type: 
  Country: None (occurrence: None)
  Receive Date: 20080917
  Receipt Date: 20080910
  Transmission Date: 20090109
  Serious: Yes (Other)
  Sender: FDA-Public Use
  Company Number: CN-JNJFOC-20080802087

PATIENT
  Age: 34 Year
  Sex: Female

DRUGS (2)
  1. SPORANOX [Suspect]
     Route: 048
  2. SPORANOX [Suspect]
     Indication: ONYCHOMYCOSIS
     Route: 048

REACTIONS (4)
  - GENERALISED OEDEMA [None]
  - LANGERHANS' CELL GRANULOMATOSIS [None]
  - ONYCHOMYCOSIS [None]
  - PAIN [None]
